FAERS Safety Report 10020772 (Version 1)
Quarter: 2014Q1

REPORT INFORMATION
  Report Type: Spontaneous
  Country: FI (occurrence: FI)
  Receive Date: 20140319
  Receipt Date: 20140319
  Transmission Date: 20141002
  Serious: Yes (Other)
  Sender: FDA-Public Use
  Company Number: FI-ELI_LILLY_AND_COMPANY-FI201403002358

PATIENT
  Age: 20 Year
  Sex: Female

DRUGS (6)
  1. STRATTERA [Suspect]
     Indication: PRODUCT USED FOR UNKNOWN INDICATION
     Dosage: 25 MG, QD
     Route: 065
     Dates: start: 20130103
  2. STRATTERA [Suspect]
     Dosage: 40 MG, UNKNOWN
     Route: 065
     Dates: start: 20130212
  3. STRATTERA [Suspect]
     Dosage: 65 MG, UNKNOWN
     Route: 065
     Dates: start: 20130311
  4. STRATTERA [Suspect]
     Dosage: 80 MG, UNKNOWN
     Route: 065
     Dates: start: 20130422
  5. STRATTERA [Suspect]
     Dosage: UNK, UNKNOWN
     Route: 065
     Dates: start: 201402
  6. MELATONIN [Concomitant]
     Indication: PRODUCT USED FOR UNKNOWN INDICATION
     Dosage: UNK, UNKNOWN
     Route: 065

REACTIONS (1)
  - Suicide attempt [Recovered/Resolved]
